FAERS Safety Report 14612175 (Version 1)
Quarter: 2018Q1

REPORT INFORMATION
  Report Type: Report from Study
  Country: AU (occurrence: AU)
  Receive Date: 20180308
  Receipt Date: 20180308
  Transmission Date: 20180509
  Serious: Yes (Other)
  Sender: FDA-Public Use
  Company Number: PHHY2017AU157700

PATIENT
  Age: 51 Year
  Sex: Female
  Weight: 75 kg

DRUGS (6)
  1. LEE011 [Suspect]
     Active Substance: RIBOCICLIB
     Dosage: 600 MG, QD
     Route: 048
  2. LETROZOLE. [Suspect]
     Active Substance: LETROZOLE
     Indication: BREAST CANCER
     Dosage: 2.5 MG, QD
     Route: 048
     Dates: start: 20170901
  3. LEE011 [Suspect]
     Active Substance: RIBOCICLIB
     Indication: BREAST CANCER METASTATIC
     Dosage: 600 MG, QD
     Route: 048
     Dates: start: 20171001
  4. SERETIDE [Concomitant]
     Active Substance: FLUTICASONE PROPIONATE\SALMETEROL XINAFOATE
     Indication: PRODUCT USED FOR UNKNOWN INDICATION
     Route: 065
  5. LEE011 [Suspect]
     Active Substance: RIBOCICLIB
     Dosage: 600 MG, QD
     Route: 048
     Dates: end: 20180101
  6. VENTOLIN [Concomitant]
     Active Substance: ALBUTEROL SULFATE
     Indication: PRODUCT USED FOR UNKNOWN INDICATION
     Route: 065

REACTIONS (9)
  - Liver function test abnormal [Unknown]
  - Neutropenia [Recovered/Resolved]
  - Lymphopenia [Unknown]
  - Alanine aminotransferase increased [Unknown]
  - Pneumonia [Recovered/Resolved]
  - Neutrophil count abnormal [Unknown]
  - Leukopenia [Unknown]
  - Alanine aminotransferase abnormal [Unknown]
  - Blood bilirubin abnormal [Unknown]

NARRATIVE: CASE EVENT DATE: 20171023
